FAERS Safety Report 6998419-8 (Version None)
Quarter: 2010Q3

REPORT INFORMATION
  Report Type: 
  Country: None (occurrence: None)
  Receive Date: 20100920
  Receipt Date: 20100908
  Transmission Date: 20110219
  Serious: Yes (Death)
  Sender: FDA-Public Use
  Company Number: CA-JNJFOC-20100902933

PATIENT
  Sex: Female

DRUGS (1)
  1. REMICADE [Suspect]
     Indication: PYODERMA GANGRENOSUM
     Dosage: DOSE ^475^
     Route: 042

REACTIONS (4)
  - ANAEMIA [None]
  - DEATH [None]
  - DYSPNOEA [None]
  - URINARY TRACT INFECTION [None]
